FAERS Safety Report 10167738 (Version 3)
Quarter: 2014Q3

REPORT INFORMATION
  Report Type: Spontaneous
  Country: US (occurrence: None)
  Receive Date: 20140508
  Receipt Date: 20140722
  Transmission Date: 20150326
  Serious: Yes (Hospitalization)
  Sender: FDA-Public Use
  Company Number: UTC-048103

PATIENT
  Age: 66 Year
  Sex: Female

DRUGS (2)
  1. TYVASO [Suspect]
     Active Substance: TREPROSTINIL
     Indication: COR PULMONALE CHRONIC
     Dosage: 4 IN 1 D
     Route: 055
     Dates: start: 20130918
  2. LETAIRIS (AMBRISENTAN) (UNKNOWN) [Concomitant]

REACTIONS (3)
  - Limb injury [None]
  - Cellulitis [None]
  - Foreign body [None]

NARRATIVE: CASE EVENT DATE: 2014
